FAERS Safety Report 5829835-5 (Version None)
Quarter: 2008Q3

REPORT INFORMATION
  Report Type: 
  Country: None (occurrence: None)
  Receive Date: 20080801
  Receipt Date: 20080721
  Transmission Date: 20090109
  Serious: Yes (Hospitalization)
  Sender: FDA-Public Use
  Company Number: US-BAYER-200811243NA

PATIENT
  Age: 70 Year
  Sex: Male
  Weight: 72 kg

DRUGS (12)
  1. NEXAVAR [Suspect]
     Indication: HEPATIC NEOPLASM MALIGNANT
     Route: 048
     Dates: start: 20070921, end: 20071022
  2. NEXAVAR [Interacting]
     Route: 048
     Dates: start: 20071130, end: 20071213
  3. COUMADIN [Interacting]
     Indication: ATRIAL FIBRILLATION
     Dosage: TOTAL DAILY DOSE: 6 MG  UNIT DOSE: 6 MG
     Dates: start: 20070414, end: 20071104
  4. COUMADIN [Interacting]
     Dosage: TOTAL DAILY DOSE: 6 MG  UNIT DOSE: 6 MG
     Dates: start: 20071120, end: 20071206
  5. COUMADIN [Interacting]
     Dosage: TOTAL DAILY DOSE: 3 MG  UNIT DOSE: 6 MG
     Dates: start: 20071105, end: 20071101
  6. COUMADIN [Interacting]
     Dosage: TOTAL DAILY DOSE: 3 MG  UNIT DOSE: 6 MG
     Dates: start: 20070414, end: 20071104
  7. COUMADIN [Interacting]
     Dosage: TOTAL DAILY DOSE: 6 MG  UNIT DOSE: 6 MG
     Dates: start: 20071212
  8. NEXIUM [Concomitant]
     Route: 048
  9. LANOXIN [Concomitant]
     Dosage: TOTAL DAILY DOSE: 0.125 MG
  10. ASPIRIN [Concomitant]
     Dosage: TOTAL DAILY DOSE: 325 MG
     Route: 048
  11. METOPROLOL [Concomitant]
     Dosage: TOTAL DAILY DOSE: 200 MG
     Route: 048
  12. LASIX [Concomitant]
     Dosage: TOTAL DAILY DOSE: 40 MG
     Route: 048

REACTIONS (5)
  - HAEMORRHAGE [None]
  - INTERNATIONAL NORMALISED RATIO INCREASED [None]
  - MUSCLE TIGHTNESS [None]
  - PAIN IN EXTREMITY [None]
  - THERAPEUTIC AGENT TOXICITY [None]
